FAERS Safety Report 21318243 (Version 2)
Quarter: 2022Q3

REPORT INFORMATION
  Report Type: Spontaneous
  Country: US (occurrence: US)
  Receive Date: 20220911
  Receipt Date: 20220927
  Transmission Date: 20221027
  Serious: No
  Sender: FDA-Public Use
  Company Number: US-SA-SAC20220829000887

PATIENT
  Age: 61 Year
  Sex: Female

DRUGS (35)
  1. AUBAGIO [Suspect]
     Active Substance: TERIFLUNOMIDE
     Indication: Multiple sclerosis
     Dosage: 14 MG, QD
     Route: 048
     Dates: start: 201811
  2. ACETAMINOPHEN [Concomitant]
     Active Substance: ACETAMINOPHEN
  3. DIPHENHYDRAMINE [Concomitant]
     Active Substance: DIPHENHYDRAMINE
  4. HEPARIN [Concomitant]
     Active Substance: HEPARIN SODIUM
  5. LIDOCAINE [Concomitant]
     Active Substance: LIDOCAINE
  6. METHYLPREDNISOLONE [Concomitant]
     Active Substance: METHYLPREDNISOLONE
  7. SODIUM CHLORIDE [Concomitant]
     Active Substance: SODIUM CHLORIDE
  8. EPINEPHRINE [Concomitant]
     Active Substance: EPINEPHRINE
  9. OCTAGAM IMMUNE GLOBULIN (HUMAN) [Concomitant]
     Active Substance: HUMAN IMMUNOGLOBULIN G
  10. COPPER;ZINC [Concomitant]
  11. HERBALS\TURMERIC [Concomitant]
     Active Substance: HERBALS\TURMERIC
  12. VENLAFAXINE HCL [Concomitant]
     Active Substance: VENLAFAXINE HYDROCHLORIDE
  13. BACLOFEN [Concomitant]
     Active Substance: BACLOFEN
  14. GABAPENTIN [Concomitant]
     Active Substance: GABAPENTIN
  15. ONDANSETRON HCL [Concomitant]
     Active Substance: ONDANSETRON HYDROCHLORIDE
  16. VITAMIN D2 [Concomitant]
     Active Substance: ERGOCALCIFEROL
  17. MOVANTIK [Concomitant]
     Active Substance: NALOXEGOL OXALATE
  18. SALAGEN [Concomitant]
     Active Substance: PILOCARPINE HYDROCHLORIDE
  19. BIFIDOBACTERIUM ANIMALIS LACTIS [Concomitant]
     Active Substance: BIFIDOBACTERIUM ANIMALIS LACTIS
  20. HYDRALAZINE HCL [Concomitant]
     Active Substance: HYDRALAZINE HYDROCHLORIDE
  21. ELETRIPTAN HYDROBROMIDE [Concomitant]
     Active Substance: ELETRIPTAN HYDROBROMIDE
  22. DIAZEPAM [Concomitant]
     Active Substance: DIAZEPAM
  23. CLOTRIMAZOLE [Concomitant]
     Active Substance: CLOTRIMAZOLE
  24. BIOTIN [Concomitant]
     Active Substance: BIOTIN
  25. LIDODERM [Concomitant]
     Active Substance: LIDOCAINE
  26. MYRBETRIQ [Concomitant]
     Active Substance: MIRABEGRON
  27. CLARITIN-D NOS [Concomitant]
     Active Substance: LORATADINE\PSEUDOEPHEDRINE SULFATE
  28. .ALPHA.-TOCOPHEROL [Concomitant]
     Active Substance: .ALPHA.-TOCOPHEROL
  29. VITAMIN A [Concomitant]
     Active Substance: VITAMIN A
  30. VITAMINS NOS [Concomitant]
     Active Substance: VITAMINS
  31. OMEGA 3 FISH OIL + VITAMIN D [Concomitant]
  32. MAGNESIUM [Concomitant]
     Active Substance: MAGNESIUM
  33. POLYVINYL ALCOHOL\POVIDONE [Concomitant]
     Active Substance: POLYVINYL ALCOHOL\POVIDONE
  34. VITAMIN B COMPLEX [Concomitant]
     Active Substance: CYANOCOBALAMIN\DEXPANTHENOL\NIACINAMIDE\PYRIDOXINE HYDROCHLORIDE\RIBOFLAVIN 5^-PHOSPHATE SODIUM\THIA
  35. PROBIOTICS NOS [Concomitant]
     Active Substance: PROBIOTICS NOS

REACTIONS (4)
  - Pyrexia [Unknown]
  - Fatigue [Unknown]
  - Back pain [Unknown]
  - Flank pain [Unknown]
